FAERS Safety Report 6751509-7 (Version None)
Quarter: 2010Q2

REPORT INFORMATION
  Report Type: 
  Country: None (occurrence: None)
  Receive Date: 20100602
  Receipt Date: 20100524
  Transmission Date: 20101027
  Serious: Yes (Other)
  Sender: FDA-Public Use
  Company Number: A0861001A

PATIENT
  Age: 67 Year
  Sex: Female

DRUGS (11)
  1. ALLI [Suspect]
     Route: 048
     Dates: end: 20091217
  2. LORAZEPAM [Concomitant]
     Indication: PAIN
     Route: 048
  3. OMEPRAZOLE [Concomitant]
     Route: 048
  4. AVANDIA [Concomitant]
     Route: 048
  5. FLUOXETINE [Concomitant]
     Route: 048
  6. CARVEDILOL [Concomitant]
     Route: 048
  7. CALCIUM CARBONATE [Concomitant]
     Route: 048
  8. POTASSIUM [Concomitant]
     Route: 048
  9. FOLIC ACID [Concomitant]
     Route: 048
  10. ECOTRIN [Concomitant]
     Route: 048
  11. LOVAZA [Concomitant]
     Route: 048

REACTIONS (13)
  - ANAL FISSURE [None]
  - ANORECTAL DISCOMFORT [None]
  - BURNING SENSATION [None]
  - DIARRHOEA [None]
  - DROOLING [None]
  - FAECES DISCOLOURED [None]
  - HAEMORRHOIDS [None]
  - IMMOBILE [None]
  - MALAISE [None]
  - PAIN [None]
  - RECTAL HAEMORRHAGE [None]
  - RHINORRHOEA [None]
  - STEATORRHOEA [None]
